FAERS Safety Report 20020502 (Version 2)
Quarter: 2022Q2

REPORT INFORMATION
  Report Type: Spontaneous
  Country: IN (occurrence: IN)
  Receive Date: 20211101
  Receipt Date: 20220421
  Transmission Date: 20220721
  Serious: Yes (Hospitalization, Other)
  Sender: FDA-Public Use
  Company Number: IN-NOVARTISPH-NVSC2021IN244255

PATIENT
  Age: 35 Year
  Sex: Male

DRUGS (3)
  1. SIMULECT [Suspect]
     Active Substance: BASILIXIMAB
     Indication: Renal transplant
     Dosage: 20 MG, UNKNOWN
     Route: 065
     Dates: start: 20210910
  2. SIMULECT [Suspect]
     Active Substance: BASILIXIMAB
     Dosage: 20 MG, UNKNOWN
     Route: 065
     Dates: start: 20210914
  3. SIMULECT [Suspect]
     Active Substance: BASILIXIMAB
     Dosage: UNK
     Route: 065

REACTIONS (4)
  - Kidney transplant rejection [Unknown]
  - Transplant rejection [Unknown]
  - Renal tubular necrosis [Unknown]
  - Renal tubular injury [Unknown]

NARRATIVE: CASE EVENT DATE: 20210916
